FAERS Safety Report 13256802 (Version 2)
Quarter: 2017Q1

REPORT INFORMATION
  Report Type: Spontaneous
  Country: US (occurrence: US)
  Receive Date: 20170221
  Receipt Date: 20170307
  Transmission Date: 20170428
  Serious: Yes (Other)
  Sender: FDA-Public Use
  Company Number: US-AKORN PHARMACEUTICALS-2017AKN00171

PATIENT
  Sex: Female
  Weight: 61.22 kg

DRUGS (2)
  1. UNKNOWN ORAL CONTRACEPTIVE [Concomitant]
  2. MYORISAN [Suspect]
     Active Substance: ISOTRETINOIN
     Indication: ACNE
     Dosage: 40 MG, 1X/DAY
     Route: 048
     Dates: start: 20161203, end: 20170113

REACTIONS (1)
  - Depressive symptom [Unknown]
